FAERS Safety Report 13256922 (Version 3)
Quarter: 2017Q3

REPORT INFORMATION
  Report Type: Report from Study
  Country: None (occurrence: CZ)
  Receive Date: 20170221
  Receipt Date: 20170829
  Transmission Date: 20171127
  Serious: Yes (Other)
  Sender: FDA-Public Use
  Company Number: CZ-CELGENEUS-CZE-2017022697

PATIENT
  Age: 66 Year
  Sex: Female

DRUGS (1)
  1. IMNOVID [Suspect]
     Active Substance: POMALIDOMIDE
     Indication: PLASMA CELL MYELOMA
     Route: 048

REACTIONS (6)
  - Pathological fracture [Unknown]
  - Toothache [Unknown]
  - Hypotension [Unknown]
  - Oedema peripheral [Unknown]
  - Cushingoid [Unknown]
  - Back pain [Unknown]
